FAERS Safety Report 6024620-6 (Version None)
Quarter: 2008Q4

REPORT INFORMATION
  Report Type: 
  Country: None (occurrence: None)
  Receive Date: 20081231
  Receipt Date: 20081219
  Transmission Date: 20090506
  Serious: Yes (Congenital Anomaly, Other)
  Sender: FDA-Public Use
  Company Number: US-PFIZER INC-2007095340

PATIENT
  Sex: Male
  Weight: 2 kg

DRUGS (2)
  1. ZOLOFT [Suspect]
     Indication: DEPRESSION
     Route: 064
     Dates: start: 19991001
  2. ACETAMINOPHEN [Concomitant]
     Indication: EAR DISORDER

REACTIONS (5)
  - DRUG EXPOSURE DURING PREGNANCY [None]
  - LIMB REDUCTION DEFECT [None]
  - SCOLIOSIS [None]
  - TOOTH DISORDER [None]
  - TORTICOLLIS [None]
